FAERS Safety Report 24963657 (Version 2)
Quarter: 2025Q1

REPORT INFORMATION
  Report Type: Spontaneous
  Country: DE (occurrence: DE)
  Receive Date: 20250213
  Receipt Date: 20250220
  Transmission Date: 20250409
  Serious: Yes (Other)
  Sender: SANDOZ
  Company Number: DE-SANDOZ-SDZ2025DE008220

PATIENT
  Sex: Female

DRUGS (1)
  1. FULVESTRANT [Suspect]
     Active Substance: FULVESTRANT
     Indication: Breast cancer
     Route: 030
     Dates: start: 20240125, end: 20250206

REACTIONS (5)
  - Hypertension [Unknown]
  - Flushing [Recovering/Resolving]
  - Tachycardia [Unknown]
  - Erythema [Unknown]
  - Cough [Unknown]
